FAERS Safety Report 9140731 (Version 2)
Quarter: 2013Q2

REPORT INFORMATION
  Report Type: Report from Study
  Country: US (occurrence: US)
  Receive Date: 20130305
  Receipt Date: 20130405
  Transmission Date: 20140414
  Serious: Yes (Other)
  Sender: FDA-Public Use
  Company Number: US-BAYER-2013-025479

PATIENT
  Age: 70 Year
  Sex: Female

DRUGS (11)
  1. STIVARGA [Suspect]
     Indication: COLON CANCER
     Dosage: 160 MG, QD
     Route: 048
     Dates: start: 20130212
  2. STIVARGA [Suspect]
     Indication: COLON CANCER
     Dosage: 160 MG, QD (4 TABLETS BY MOUTH ONCE DAILY FOR 21 DAYS)
     Route: 048
     Dates: end: 20130219
  3. STIVARGA [Suspect]
     Indication: COLON CANCER
     Dosage: 160 MG, QD
     Route: 048
  4. XELODA [Concomitant]
     Dosage: DAILY DOSE 500 MG
  5. TRIAMCINOLON [Concomitant]
     Dosage: 0.25%
  6. XARELTO [Concomitant]
     Dosage: DAILY DOSE 10 MG
  7. GABAPENTIN [Concomitant]
     Dosage: DAILY DOSE 100 MG
  8. LORAZEPAM [Concomitant]
     Dosage: DAILY DOSE 1 MG
  9. HYDROCHLOROTHIAZIDE [Concomitant]
     Dosage: DAILY DOSE 12.5 MG
  10. HYDROCHLOROTHIAZIDE W/IRBESARTAN [Concomitant]
     Dosage: 150-12.5
  11. CALCIUM [Concomitant]
     Dosage: DAILY DOSE 500 MG

REACTIONS (8)
  - Abasia [Unknown]
  - Palmar-plantar erythrodysaesthesia syndrome [Unknown]
  - Pain in extremity [Unknown]
  - Hypoaesthesia [Unknown]
  - Erythema [Unknown]
  - Local swelling [Unknown]
  - Joint range of motion decreased [Unknown]
  - Blood pressure increased [Recovered/Resolved]
